FAERS Safety Report 10150254 (Version 1)
Quarter: 2014Q2

REPORT INFORMATION
  Report Type: Spontaneous
  Country: CH (occurrence: CH)
  Receive Date: 20140502
  Receipt Date: 20140502
  Transmission Date: 20141212
  Serious: Yes (Life-Threatening)
  Sender: FDA-Public Use
  Company Number: CH-ASTRAZENECA-2014SE29253

PATIENT
  Age: 41 Year
  Sex: Female

DRUGS (7)
  1. NEXIUM [Suspect]
     Route: 048
     Dates: start: 2014, end: 2014
  2. PANTOPRAZOL [Suspect]
     Route: 048
     Dates: start: 201401, end: 201401
  3. IBUPROFEN [Concomitant]
     Dates: start: 201401
  4. LISINOPRIL [Concomitant]
     Dates: start: 201401
  5. PROTON PUMP INHIBITOR [Concomitant]
     Dates: start: 201402
  6. UNKNOWN ANALGESIC [Concomitant]
     Dates: start: 201402
  7. CORTINASAL [Concomitant]
     Dates: start: 201402

REACTIONS (6)
  - Dyspnoea [Recovered/Resolved]
  - Pruritus generalised [Recovered/Resolved]
  - Drug hypersensitivity [Not Recovered/Not Resolved]
  - Anaphylactic reaction [Recovered/Resolved]
  - Rash generalised [Recovered/Resolved]
  - Lip swelling [Recovered/Resolved]
